FAERS Safety Report 7432078-5 (Version None)
Quarter: 2011Q2

REPORT INFORMATION
  Report Type: 
  Country: None (occurrence: None)
  Receive Date: 20110422
  Receipt Date: 20110408
  Transmission Date: 20111010
  Serious: Yes (Other)
  Sender: FDA-Public Use
  Company Number: US-JNJFOC-20110407084

PATIENT
  Age: 85 Year
  Sex: Female
  Weight: 59.88 kg

DRUGS (3)
  1. LISTERINE TOTAL CARE ANTICAVITY MOUTHWASH [Suspect]
     Indication: DENTAL DISORDER PROPHYLAXIS
     Dosage: 2 TEASPOONS; USED PRODUCT THREE TIMES TOTAL
     Route: 048
  2. ATENOLOL [Concomitant]
     Indication: HYPERTENSION
     Route: 065
  3. AMBIEN [Concomitant]
     Indication: SLEEP DISORDER THERAPY
     Route: 065

REACTIONS (3)
  - TONGUE BLISTERING [None]
  - ORAL DISCOMFORT [None]
  - TONGUE HAEMORRHAGE [None]
